FAERS Safety Report 13459877 (Version 1)
Quarter: 2017Q2

REPORT INFORMATION
  Report Type: Spontaneous
  Country: US (occurrence: US)
  Receive Date: 20170420
  Receipt Date: 20170420
  Transmission Date: 20170830
  Serious: Yes (Other)
  Sender: FDA-Public Use
  Company Number: US-TEVA-731013USA

PATIENT
  Age: 66 Year

DRUGS (12)
  1. DOCUSATE [Concomitant]
     Active Substance: DOCUSATE
     Dosage: 400 MILLIGRAM DAILY;
     Route: 048
  2. REGULAR INSULIN SLIDING SCALE [Concomitant]
  3. SIMVASTATIN. [Concomitant]
     Active Substance: SIMVASTATIN
     Route: 048
  4. LORAZEPAM. [Concomitant]
     Active Substance: LORAZEPAM
     Route: 042
  5. DEXAMETHASONE. [Concomitant]
     Active Substance: DEXAMETHASONE
     Route: 048
  6. POTASSIUM CHLORIDE SR [Concomitant]
     Route: 048
  7. MESNA. [Concomitant]
     Active Substance: MESNA
     Route: 042
  8. MESNA. [Concomitant]
     Active Substance: MESNA
     Route: 048
  9. ONDANSETRON [Concomitant]
     Active Substance: ONDANSETRON
     Route: 048
  10. ENOXAPARIN [Concomitant]
     Active Substance: ENOXAPARIN
     Route: 058
  11. GLIPIZIDE. [Concomitant]
     Active Substance: GLIPIZIDE
     Dosage: 80 MILLIGRAM DAILY;
     Route: 048
  12. IFOSFAMIDE. [Suspect]
     Active Substance: IFOSFAMIDE
     Dosage: 3 GM/60 ML, 1920 MG
     Route: 042
     Dates: start: 20170111

REACTIONS (3)
  - Disorientation [Recovered/Resolved]
  - Neurotoxicity [Recovered/Resolved]
  - Confusional state [Recovered/Resolved]

NARRATIVE: CASE EVENT DATE: 20170113
